FAERS Safety Report 22340976 (Version 1)
Quarter: 2023Q2

REPORT INFORMATION
  Report Type: Report from Study
  Country: US (occurrence: US)
  Receive Date: 20230518
  Receipt Date: 20230518
  Transmission Date: 20230721
  Serious: Yes (Other)
  Sender: FDA-Public Use
  Company Number: US-JAZZ-2022-US-031228

PATIENT
  Sex: Female

DRUGS (35)
  1. XYREM [Suspect]
     Active Substance: SODIUM OXYBATE
     Indication: Narcolepsy
     Dosage: UNK
  2. XYREM [Suspect]
     Active Substance: SODIUM OXYBATE
     Indication: Cataplexy
  3. XYREM [Suspect]
     Active Substance: SODIUM OXYBATE
     Indication: Somnolence
  4. AMBIEN [Suspect]
     Active Substance: ZOLPIDEM TARTRATE
     Indication: Product used for unknown indication
     Dosage: UNK
  5. ASPIRIN [Suspect]
     Active Substance: ASPIRIN
     Indication: Product used for unknown indication
  6. ADDERALL [Concomitant]
     Active Substance: AMPHETAMINE ASPARTATE\AMPHETAMINE SULFATE\DEXTROAMPHETAMINE SACCHARATE\DEXTROAMPHETAMINE SULFATE
  7. TOPROL XL [Concomitant]
     Active Substance: METOPROLOL SUCCINATE
  8. IMITREX [Concomitant]
     Active Substance: SUMATRIPTAN SUCCINATE
  9. KEFLEX [Concomitant]
     Active Substance: CEPHALEXIN
  10. VENTOLIN HFA [Concomitant]
     Active Substance: ALBUTEROL SULFATE
  11. ADVAIR HFA [Concomitant]
     Active Substance: FLUTICASONE PROPIONATE\SALMETEROL XINAFOATE
  12. NICOTROL [Concomitant]
     Active Substance: NICOTINE
  13. LOPRESSOR [Concomitant]
     Active Substance: METOPROLOL TARTRATE
  14. DITROPAN [Concomitant]
     Active Substance: OXYBUTYNIN CHLORIDE
  15. TAMSULOSIN HYDROCHLORIDE [Concomitant]
     Active Substance: TAMSULOSIN HYDROCHLORIDE
  16. CYANOCOBALAMIN [Concomitant]
     Active Substance: CYANOCOBALAMIN
  17. XYZAL [Concomitant]
     Active Substance: LEVOCETIRIZINE DIHYDROCHLORIDE
  18. PRILOSEC [Concomitant]
     Active Substance: OMEPRAZOLE MAGNESIUM
  19. CLARITHROMYCIN [Concomitant]
     Active Substance: CLARITHROMYCIN
  20. PRISTIQ EXTENDED-RELEASE [Concomitant]
     Active Substance: DESVENLAFAXINE SUCCINATE
  21. MAGNESIUM CHLORIDE [Concomitant]
     Active Substance: MAGNESIUM CHLORIDE
  22. KLOR-CON [Concomitant]
     Active Substance: POTASSIUM CHLORIDE
  23. MAGNESIUM OXIDE [Concomitant]
     Active Substance: MAGNESIUM OXIDE
  24. CLARITIN [Concomitant]
     Active Substance: LORATADINE
  25. ARMODAFINIL [Concomitant]
     Active Substance: ARMODAFINIL
  26. ZOFRAN [Concomitant]
     Active Substance: ONDANSETRON HYDROCHLORIDE
  27. CEFTRIAXONE [Concomitant]
     Active Substance: CEFTRIAXONE
  28. ERGOCALCIFEROL [Concomitant]
     Active Substance: ERGOCALCIFEROL
  29. LYRICA [Concomitant]
     Active Substance: PREGABALIN
  30. VALIUM [Concomitant]
     Active Substance: DIAZEPAM
  31. MS CONTIN [Concomitant]
     Active Substance: MORPHINE SULFATE
  32. KENALOG [Concomitant]
     Active Substance: TRIAMCINOLONE ACETONIDE
  33. SENOKOT [Concomitant]
     Active Substance: SENNOSIDES
  34. FOLVITE [Concomitant]
     Active Substance: FOLIC ACID
  35. ASCORBIC ACID [Concomitant]
     Active Substance: ASCORBIC ACID

REACTIONS (14)
  - Suicidal ideation [Unknown]
  - Hypoacusis [Unknown]
  - Sinusitis [Unknown]
  - Nasal congestion [Unknown]
  - Wheezing [Unknown]
  - Stress [Unknown]
  - Feeling abnormal [Unknown]
  - Somnambulism [Unknown]
  - Dyspnoea [Unknown]
  - Cough [Unknown]
  - Headache [Unknown]
  - Pain [Unknown]
  - Product administration interrupted [Unknown]
  - Product dose omission issue [Unknown]
